FAERS Safety Report 9654559 (Version 1)
Quarter: 2013Q4

REPORT INFORMATION
  Report Type: Spontaneous
  Country: US (occurrence: US)
  Receive Date: 20131029
  Receipt Date: 20131029
  Transmission Date: 20140711
  Serious: No
  Sender: FDA-Public Use
  Company Number: US-BIOGENIDEC-2013BI085130

PATIENT
  Sex: Male

DRUGS (5)
  1. TECFIDERA [Suspect]
     Indication: MULTIPLE SCLEROSIS
     Route: 048
     Dates: start: 20130808
  2. ALPRAZOLAM [Concomitant]
  3. AMITRIPTYLINE HCL [Concomitant]
  4. D3 ADULT MULTIVITAMINS [Concomitant]
  5. OMEPRAZOLE [Concomitant]

REACTIONS (1)
  - Flushing [Unknown]
